FAERS Safety Report 24395970 (Version 6)
Quarter: 2024Q4

REPORT INFORMATION
  Report Type: Report from Study
  Country: CA (occurrence: CA)
  Receive Date: 20241004
  Receipt Date: 20241212
  Transmission Date: 20250115
  Serious: Yes (Life-Threatening, Hospitalization, Other)
  Sender: GLAXOSMITHKLINE
  Company Number: CA-GLAXOSMITHKLINE-CA2024110638

PATIENT

DRUGS (11)
  1. BELIMUMAB [Suspect]
     Active Substance: BELIMUMAB
     Indication: Lupus nephritis
     Dosage: 10 MG/KG, Q4W
     Route: 042
     Dates: start: 20240827
  2. BELIMUMAB [Suspect]
     Active Substance: BELIMUMAB
     Dosage: UNK
  3. BELIMUMAB [Suspect]
     Active Substance: BELIMUMAB
     Dosage: 1180 MG, Q4W
     Route: 042
     Dates: end: 20241105
  4. DIPHENHYDRAMINE [Concomitant]
     Active Substance: DIPHENHYDRAMINE
     Indication: Premedication
     Dosage: 50 MG
  5. HYDROXYCHLOROQUINE [Concomitant]
     Active Substance: HYDROXYCHLOROQUINE
     Indication: Product used for unknown indication
     Dosage: 100 MG, QD HALF TAB
  6. MYCOPHENOLIC ACID [Concomitant]
     Active Substance: MYCOPHENOLIC ACID
     Indication: Product used for unknown indication
     Dosage: 1000 MG, BID
  7. MYCOPHENOLIC ACID [Concomitant]
     Active Substance: MYCOPHENOLIC ACID
     Dosage: 7.5 MG
  8. METHYLPREDNISOLONE [Concomitant]
     Active Substance: METHYLPREDNISOLONE
     Indication: Product used for unknown indication
     Dosage: 250 MG, QD (3 DAYS)
     Route: 042
  9. AZATHIOPRINE [Concomitant]
     Active Substance: AZATHIOPRINE
     Indication: Product used for unknown indication
     Dosage: UNK
  10. METHOTREXATE [Concomitant]
     Active Substance: METHOTREXATE
     Indication: Product used for unknown indication
     Dosage: UNK
  11. PREDNISONE [Concomitant]
     Active Substance: PREDNISONE
     Indication: Product used for unknown indication
     Dosage: UNK

REACTIONS (24)
  - Hospitalisation [Recovered/Resolved]
  - Syncope [Unknown]
  - Biliary catheter insertion [Recovered/Resolved]
  - Pneumonia [Recovering/Resolving]
  - Respiratory syncytial virus infection [Recovering/Resolving]
  - Hypokinesia [Unknown]
  - Nausea [Unknown]
  - Blood pressure increased [Unknown]
  - Peripheral swelling [Unknown]
  - Fluid retention [Unknown]
  - Rash [Unknown]
  - Tremor [Recovered/Resolved]
  - Insomnia [Unknown]
  - Dysstasia [Not Recovered/Not Resolved]
  - Candida infection [Not Recovered/Not Resolved]
  - Hypoaesthesia [Not Recovered/Not Resolved]
  - Panic attack [Unknown]
  - Condition aggravated [Unknown]
  - Rash erythematous [Unknown]
  - Discomfort [Unknown]
  - Fungal infection [Not Recovered/Not Resolved]
  - Influenza [Recovering/Resolving]
  - Adverse drug reaction [Unknown]
  - Product dose omission issue [Unknown]

NARRATIVE: CASE EVENT DATE: 20240924
